FAERS Safety Report 17293473 (Version 1)
Quarter: 2020Q1

REPORT INFORMATION
  Report Type: Spontaneous
  Country: US (occurrence: US)
  Receive Date: 20200121
  Receipt Date: 20200121
  Transmission Date: 20200409
  Serious: Yes (Life-Threatening)
  Sender: FDA-Public Use
  Company Number: US-ADAREPHARM-2020-US-000005

PATIENT
  Age: 53 Year
  Sex: Male

DRUGS (2)
  1. METHIMAZOLE. [Concomitant]
     Active Substance: METHIMAZOLE
  2. PROPRANOLOL [Suspect]
     Active Substance: PROPRANOLOL HYDROCHLORIDE
     Indication: HYPERTHYROIDISM

REACTIONS (4)
  - Bradycardia [Unknown]
  - Pulseless electrical activity [Unknown]
  - Product use in unapproved indication [Unknown]
  - Hypotension [Unknown]
